FAERS Safety Report 4293633-7 (Version None)
Quarter: 2004Q1

REPORT INFORMATION
  Report Type: 
  Country: None (occurrence: None)
  Receive Date: 20040212
  Receipt Date: 20031202
  Transmission Date: 20041129
  Serious: Yes (Hospitalization)
  Sender: FDA-Public Use
  Company Number: 200410024US

PATIENT
  Sex: Female
  Weight: 86.4 kg

DRUGS (10)
  1. ARAVA [Suspect]
     Indication: RHEUMATOID ARTHRITIS
     Route: 048
     Dates: start: 20020101, end: 20020711
  2. PREDNISONE [Concomitant]
     Route: 048
     Dates: start: 20020122
  3. VITAMIN B COMPLEX CAP [Concomitant]
     Dosage: DOSE: 1 TABLET
     Route: 048
     Dates: start: 20020711
  4. PENICILLIN VK [Concomitant]
     Route: 048
     Dates: start: 20020305
  5. PRILOSEC [Concomitant]
     Route: 048
     Dates: start: 20020404
  6. LIDOCAINE 2% [Concomitant]
     Dosage: DOSE: VISCOUS
     Dates: start: 20020405
  7. NYSTATIN [Concomitant]
     Dosage: DOSE: UNK
  8. AMOXICILLIN [Concomitant]
     Route: 048
     Dates: start: 20030328
  9. FLAX OIL [Concomitant]
     Dosage: DOSE: ONE
     Route: 048
  10. DARVOCET-N 100 [Concomitant]
     Dosage: DOSE: UNK
     Route: 048
     Dates: start: 20020305

REACTIONS (26)
  - ABDOMINAL DISTENSION [None]
  - ABDOMINAL PAIN [None]
  - ALANINE AMINOTRANSFERASE INCREASED [None]
  - ASPARTATE AMINOTRANSFERASE INCREASED [None]
  - BLOOD ALKALINE PHOSPHATASE INCREASED [None]
  - DRUG TOXICITY [None]
  - FATIGUE [None]
  - HEADACHE [None]
  - HEPATITIS [None]
  - HYPOTENSION [None]
  - LEUKOPENIA [None]
  - MOUTH ULCERATION [None]
  - MUSCULOSKELETAL STIFFNESS [None]
  - NAUSEA [None]
  - ORAL PAIN [None]
  - PLATELET COUNT DECREASED [None]
  - PYREXIA [None]
  - RESPIRATORY RATE INCREASED [None]
  - RETCHING [None]
  - STOMATITIS [None]
  - TACHYCARDIA [None]
  - THROMBOCYTOPENIA [None]
  - VIRAL INFECTION [None]
  - VITAMIN B COMPLEX DEFICIENCY [None]
  - VOMITING [None]
  - WHITE BLOOD CELL COUNT DECREASED [None]
